FAERS Safety Report 7631986-X (Version None)
Quarter: 2011Q3

REPORT INFORMATION
  Report Type: 
  Country: None (occurrence: None)
  Receive Date: 20110725
  Receipt Date: 20110526
  Transmission Date: 20111222
  Serious: Yes (Hospitalization)
  Sender: FDA-Public Use
  Company Number: US-BRISTOL-MYERS SQUIBB COMPANY-15759970

PATIENT
  Age: 78 Year
  Sex: Female

DRUGS (10)
  1. VITAMIN B [Concomitant]
  2. ASCORBIC ACID [Concomitant]
  3. FOLIC ACID [Concomitant]
  4. ASPIRIN [Suspect]
  5. ISOSORBIDE DINITRATE [Concomitant]
  6. LISINOPRIL [Concomitant]
  7. COUMADIN [Suspect]
  8. MULTAQ [Suspect]
     Indication: ATRIAL FIBRILLATION
     Dosage: TABS
     Route: 048
     Dates: start: 20101201
  9. SYNTHROID [Concomitant]
  10. PRILOSEC [Concomitant]
     Dosage: INCREASED TO 40MG BID
     Dates: start: 20110401

REACTIONS (1)
  - ULCER HAEMORRHAGE [None]
